FAERS Safety Report 8336632-8 (Version None)
Quarter: 2012Q2

REPORT INFORMATION
  Report Type: 
  Country: None (occurrence: None)
  Receive Date: 20120504
  Receipt Date: 20120420
  Transmission Date: 20120825
  Serious: Yes (Hospitalization)
  Sender: FDA-Public Use
  Company Number: US-DX529-2012DX000103

PATIENT
  Age: 29 Year
  Sex: Female

DRUGS (3)
  1. CINRYZE [Concomitant]
     Indication: HEREDITARY ANGIOEDEMA
     Route: 042
  2. BERINERT [Concomitant]
     Indication: HEREDITARY ANGIOEDEMA
     Route: 042
  3. KALBITOR [Suspect]
     Indication: HEREDITARY ANGIOEDEMA
     Route: 058
     Dates: start: 20120418, end: 20120418

REACTIONS (2)
  - URINARY TRACT INFECTION [None]
  - THERAPEUTIC RESPONSE DECREASED [None]
